FAERS Safety Report 10417854 (Version 9)
Quarter: 2016Q2

REPORT INFORMATION
  Report Type: Report from Study
  Country: JP (occurrence: JP)
  Receive Date: 20140829
  Receipt Date: 20160603
  Transmission Date: 20160815
  Serious: Yes (Hospitalization, Other)
  Sender: FDA-Public Use
  Company Number: JP-ASTELLAS-2011JP008045

PATIENT
  Age: 42 Year
  Sex: Female

DRUGS (88)
  1. PREDONINE [Suspect]
     Active Substance: PREDNISOLONE\PREDNISOLONE ACETATE\PREDNISOLONE SODIUM SUCCINATE
     Route: 048
     Dates: start: 20150917
  2. PRAVASTATIN [Suspect]
     Active Substance: PRAVASTATIN\PRAVASTATIN SODIUM
     Route: 048
     Dates: start: 20100603, end: 20130321
  3. PRAVASTATIN [Suspect]
     Active Substance: PRAVASTATIN\PRAVASTATIN SODIUM
     Route: 048
     Dates: start: 20131018, end: 20131121
  4. VITAMINS NOS [Suspect]
     Active Substance: VITAMINS
     Route: 048
     Dates: start: 20120824, end: 20121115
  5. DIART [Suspect]
     Active Substance: AZOSEMIDE
     Indication: OEDEMA PERIPHERAL
     Route: 048
     Dates: start: 20130613, end: 20130718
  6. MEILAX [Concomitant]
     Active Substance: ETHYL LOFLAZEPATE
     Indication: PROPHYLAXIS
     Route: 048
     Dates: end: 20100602
  7. IRBETAN [Concomitant]
     Active Substance: IRBESARTAN
     Indication: PRODUCT USED FOR UNKNOWN INDICATION
     Route: 048
     Dates: start: 20100506, end: 20130522
  8. CELECOX [Concomitant]
     Active Substance: CELECOXIB
     Indication: MUSCULOSKELETAL PAIN
     Route: 048
     Dates: start: 20100506, end: 20130522
  9. CONIEL [Concomitant]
     Active Substance: BENIDIPINE HYDROCHLORIDE
     Indication: PRODUCT USED FOR UNKNOWN INDICATION
     Route: 048
     Dates: start: 20111222, end: 20130123
  10. PL GRAN. [Concomitant]
     Active Substance: UNSPECIFIED INGREDIENT
     Indication: BRONCHITIS
     Route: 048
     Dates: start: 20130221, end: 20130227
  11. SOLANTAL [Concomitant]
     Active Substance: TIARAMIDE
     Indication: BRONCHITIS
     Route: 048
     Dates: start: 20130221, end: 20130227
  12. LYRICA [Concomitant]
     Active Substance: PREGABALIN
     Indication: HERPES ZOSTER
     Route: 048
     Dates: start: 20141127, end: 20141201
  13. NEXIUM [Concomitant]
     Active Substance: ESOMEPRAZOLE MAGNESIUM
     Indication: ABDOMINAL PAIN UPPER
     Route: 048
     Dates: start: 20130509, end: 20130512
  14. GASLON [Concomitant]
     Active Substance: IRSOGLADINE MALEATE
     Indication: LUPUS ENTERITIS
     Route: 048
     Dates: start: 20140317, end: 20140403
  15. TRAMCET [Concomitant]
     Active Substance: ACETAMINOPHEN\TRAMADOL
     Indication: LUPUS ENTERITIS
     Dosage: UNK UNK, UNKNOWN FREQ.
     Route: 048
     Dates: start: 20140317, end: 20140403
  16. MIYA-BM [Concomitant]
     Active Substance: CLOSTRIDIUM BUTYRICUM SPORES STRAIN M-55
     Indication: COLITIS ISCHAEMIC
     Route: 048
     Dates: start: 20150417, end: 20150617
  17. IRBETAN [Concomitant]
     Active Substance: IRBESARTAN
     Route: 048
     Dates: start: 20140605
  18. CELECOX [Concomitant]
     Active Substance: CELECOXIB
     Indication: BACK PAIN
     Route: 048
     Dates: start: 20130523, end: 20140508
  19. AMLODIPINE                         /00972402/ [Concomitant]
     Active Substance: AMLODIPINE BESYLATE
     Indication: HYPOTENSION
     Route: 048
     Dates: start: 20130221, end: 20130522
  20. PL GRAN. [Concomitant]
     Active Substance: UNSPECIFIED INGREDIENT
     Route: 048
     Dates: start: 20131220, end: 20131224
  21. NAUZELIN [Concomitant]
     Active Substance: DOMPERIDONE
     Indication: GASTROENTERITIS
     Route: 048
     Dates: start: 20121115, end: 20121119
  22. TACROLIMUS. [Suspect]
     Active Substance: TACROLIMUS
     Indication: LUPUS NEPHRITIS
     Route: 048
     Dates: start: 20090515, end: 20090923
  23. PREDONINE [Suspect]
     Active Substance: PREDNISOLONE\PREDNISOLONE ACETATE\PREDNISOLONE SODIUM SUCCINATE
     Indication: LUPUS ENTERITIS
     Route: 048
     Dates: start: 20100701, end: 20101208
  24. PREDONINE [Suspect]
     Active Substance: PREDNISOLONE\PREDNISOLONE ACETATE\PREDNISOLONE SODIUM SUCCINATE
     Route: 048
     Dates: start: 20120601, end: 20121227
  25. BAYASPIRIN [Suspect]
     Active Substance: ASPIRIN
     Indication: CARDIOLIPIN ANTIBODY POSITIVE
     Route: 048
     Dates: start: 20140509
  26. PERSANTIN [Suspect]
     Active Substance: DIPYRIDAMOLE
     Indication: PROPHYLAXIS
     Route: 048
     Dates: start: 20120629, end: 20120726
  27. PREMARIN [Suspect]
     Active Substance: ESTROGENS, CONJUGATED
     Indication: MENOPAUSAL SYMPTOMS
  28. LIPOVAS [Concomitant]
     Active Substance: PRAVASTATIN SODIUM
     Indication: PRODUCT USED FOR UNKNOWN INDICATION
     Route: 048
     Dates: end: 20091223
  29. JUVELA N [Concomitant]
     Active Substance: TOCOPHERYL NICOTINATE, D-.ALPHA.
     Indication: PROPHYLAXIS
     Route: 048
     Dates: start: 20091224
  30. LENDORMIN [Concomitant]
     Active Substance: BROTIZOLAM
     Indication: INSOMNIA
     Dosage: 0.25 MG, ONCE DAILY
     Route: 048
     Dates: start: 20100729, end: 20100915
  31. LOCHOL                             /01224502/ [Concomitant]
     Active Substance: FLUVASTATIN SODIUM
     Indication: HYPERLIPIDAEMIA
     Route: 048
     Dates: start: 20131122
  32. TRAMCET [Concomitant]
     Active Substance: ACETAMINOPHEN\TRAMADOL
     Dosage: UNK UNK, UNKNOWN FREQ.
     Route: 048
     Dates: start: 20141110, end: 20141111
  33. PROCYLIN [Concomitant]
     Active Substance: BERAPROST SODIUM
     Indication: COLITIS ISCHAEMIC
     Route: 048
     Dates: start: 20150417, end: 20150617
  34. PREDONINE [Suspect]
     Active Substance: PREDNISOLONE\PREDNISOLONE ACETATE\PREDNISOLONE SODIUM SUCCINATE
     Route: 048
     Dates: start: 20121228, end: 20140316
  35. PREDONINE [Suspect]
     Active Substance: PREDNISOLONE\PREDNISOLONE ACETATE\PREDNISOLONE SODIUM SUCCINATE
     Route: 048
     Dates: start: 20140509, end: 20140702
  36. BAYASPIRIN [Suspect]
     Active Substance: ASPIRIN
     Indication: PROPHYLAXIS
     Route: 048
     Dates: start: 20100506, end: 20120628
  37. BONALON [Concomitant]
     Active Substance: ALENDRONATE SODIUM
     Indication: PROPHYLAXIS
     Route: 048
  38. CELECOX [Concomitant]
     Active Substance: CELECOXIB
     Route: 048
     Dates: start: 20141113, end: 20141120
  39. ITORAT [Concomitant]
     Indication: DERMATOPHYTOSIS OF NAIL
     Route: 048
     Dates: start: 20100603, end: 20141217
  40. ARTIST [Concomitant]
     Active Substance: CARVEDILOL
     Indication: PRODUCT USED FOR UNKNOWN INDICATION
     Route: 048
     Dates: start: 20110526, end: 20110928
  41. SOLANTAL [Concomitant]
     Active Substance: TIARAMIDE
     Indication: NASOPHARYNGITIS
     Route: 048
     Dates: start: 20130110, end: 20130119
  42. MUCOSTA [Concomitant]
     Active Substance: REBAMIPIDE
     Indication: GASTROENTERITIS
     Route: 048
     Dates: start: 20121115, end: 20121119
  43. PARIET [Concomitant]
     Active Substance: RABEPRAZOLE SODIUM
     Indication: PROPHYLAXIS
     Route: 048
     Dates: start: 20140320
  44. HYPEN                              /00613801/ [Concomitant]
     Active Substance: ETODOLAC
     Indication: LUPUS ENTERITIS
     Route: 048
     Dates: start: 20140316, end: 20140317
  45. SELARA [Concomitant]
     Active Substance: EPLERENONE
     Indication: HYPERTENSION
     Route: 048
     Dates: start: 20150122
  46. TACROLIMUS. [Suspect]
     Active Substance: TACROLIMUS
     Route: 048
     Dates: start: 20130222, end: 20130418
  47. VITAMINS NOS [Suspect]
     Active Substance: VITAMINS
     Indication: PROPHYLAXIS
     Route: 048
     Dates: start: 20120727, end: 20120823
  48. VITAMINS NOS [Suspect]
     Active Substance: VITAMINS
     Route: 048
     Dates: start: 20121116, end: 20140508
  49. FLORID [Concomitant]
     Active Substance: MICONAZOLE
     Indication: ORAL CANDIDIASIS
     Route: 048
     Dates: start: 20091224, end: 20100120
  50. CLARITH [Concomitant]
     Active Substance: CLARITHROMYCIN
     Indication: NASOPHARYNGITIS
     Route: 048
     Dates: start: 20130110, end: 20130119
  51. AMLODIPINE                         /00972402/ [Concomitant]
     Active Substance: AMLODIPINE BESYLATE
     Route: 048
     Dates: start: 20150417
  52. EMPYNASE P [Concomitant]
     Active Substance: PROTEIN
     Indication: BRONCHITIS
     Route: 048
     Dates: start: 20130221, end: 20130227
  53. CRAVIT [Concomitant]
     Active Substance: LEVOFLOXACIN
     Indication: BRONCHITIS
     Route: 048
     Dates: start: 20130221, end: 20130227
  54. NERIPROCT [Concomitant]
     Indication: LUPUS ENTERITIS
     Dosage: UNK UNK, UNKNOWN FREQ.
     Route: 054
     Dates: start: 20140321, end: 20140403
  55. ZOVIRAX [Concomitant]
     Active Substance: ACYCLOVIR
     Indication: HERPES ZOSTER
     Route: 048
     Dates: start: 20141117, end: 20141127
  56. CYTOTEC [Concomitant]
     Active Substance: MISOPROSTOL
     Indication: BACK PAIN
     Route: 048
     Dates: start: 20150917, end: 20150923
  57. TACROLIMUS. [Suspect]
     Active Substance: TACROLIMUS
     Route: 048
     Dates: start: 20090924, end: 20130221
  58. TACROLIMUS. [Suspect]
     Active Substance: TACROLIMUS
     Route: 048
     Dates: start: 20130419
  59. PREDONINE [Suspect]
     Active Substance: PREDNISOLONE\PREDNISOLONE ACETATE\PREDNISOLONE SODIUM SUCCINATE
     Indication: LUPUS NEPHRITIS
     Route: 048
     Dates: end: 20100630
  60. ADALAT [Suspect]
     Active Substance: NIFEDIPINE
     Indication: HYPERTENSION
     Route: 048
     Dates: start: 20130124, end: 20130220
  61. PREMARIN [Suspect]
     Active Substance: ESTROGENS, CONJUGATED
     Indication: PROPHYLAXIS
     Route: 048
     Dates: start: 20110728, end: 20130613
  62. NU-LOTAN [Concomitant]
     Active Substance: LOSARTAN POTASSIUM
     Indication: PRODUCT USED FOR UNKNOWN INDICATION
     Route: 048
     Dates: end: 20100331
  63. ZETIA [Concomitant]
     Active Substance: EZETIMIBE
     Indication: PRODUCT USED FOR UNKNOWN INDICATION
     Route: 048
     Dates: start: 20100225
  64. CELECOX [Concomitant]
     Active Substance: CELECOXIB
     Route: 048
     Dates: start: 20150917, end: 20150923
  65. EMPYNASE P [Concomitant]
     Active Substance: PROTEIN
     Indication: NASOPHARYNGITIS
     Route: 048
     Dates: start: 20130110, end: 20130119
  66. FEBURIC [Concomitant]
     Active Substance: FEBUXOSTAT
     Indication: HYPERURICAEMIA
     Route: 048
     Dates: start: 20130822, end: 20130919
  67. PREDONINE [Suspect]
     Active Substance: PREDNISOLONE\PREDNISOLONE ACETATE\PREDNISOLONE SODIUM SUCCINATE
     Route: 048
     Dates: start: 20101209, end: 20120531
  68. PREDONINE [Suspect]
     Active Substance: PREDNISOLONE\PREDNISOLONE ACETATE\PREDNISOLONE SODIUM SUCCINATE
     Route: 048
     Dates: start: 20140317, end: 20140320
  69. PREDONINE [Suspect]
     Active Substance: PREDNISOLONE\PREDNISOLONE ACETATE\PREDNISOLONE SODIUM SUCCINATE
     Route: 048
     Dates: start: 20140321, end: 20140508
  70. PREDONINE [Suspect]
     Active Substance: PREDNISOLONE\PREDNISOLONE ACETATE\PREDNISOLONE SODIUM SUCCINATE
     Route: 048
     Dates: start: 20140703, end: 20150916
  71. DIART [Suspect]
     Active Substance: AZOSEMIDE
     Route: 048
     Dates: start: 20130719, end: 20140730
  72. MYONAL                             /01071502/ [Concomitant]
     Indication: MUSCULOSKELETAL PAIN
     Route: 048
     Dates: start: 20111124, end: 20130320
  73. PL GRAN. [Concomitant]
     Active Substance: UNSPECIFIED INGREDIENT
     Indication: NASOPHARYNGITIS
     Route: 048
     Dates: start: 20130110, end: 20130119
  74. PL GRAN. [Concomitant]
     Active Substance: UNSPECIFIED INGREDIENT
     Route: 048
     Dates: start: 20141202, end: 20141209
  75. LYRICA [Concomitant]
     Active Substance: PREGABALIN
     Indication: NEUROPATHY PERIPHERAL
     Route: 048
     Dates: start: 20120628, end: 20120725
  76. LAC-B [Concomitant]
     Active Substance: BIFIDOBACTERIUM SPP.
     Indication: GASTROENTERITIS
     Route: 048
     Dates: start: 20121115, end: 20121119
  77. CALONAL [Concomitant]
     Active Substance: ACETAMINOPHEN
     Indication: LUPUS ENTERITIS
     Route: 048
     Dates: start: 20140321, end: 20140403
  78. MEIACT [Concomitant]
     Active Substance: CEFDITOREN PIVOXIL
     Indication: CYSTITIS
     Route: 065
     Dates: start: 20150820, end: 20150826
  79. PRAVASTATIN [Suspect]
     Active Substance: PRAVASTATIN\PRAVASTATIN SODIUM
     Indication: PRODUCT USED FOR UNKNOWN INDICATION
     Route: 048
     Dates: start: 20091224, end: 20100602
  80. NU-LOTAN [Concomitant]
     Active Substance: LOSARTAN POTASSIUM
     Route: 048
     Dates: start: 20100401, end: 20100505
  81. NATRIX [Concomitant]
     Active Substance: INDAPAMIDE
     Indication: PRODUCT USED FOR UNKNOWN INDICATION
     Route: 048
     Dates: start: 20111222, end: 20140730
  82. HUSTAZOL                           /00398403/ [Concomitant]
     Indication: NASOPHARYNGITIS
     Route: 048
     Dates: start: 20130110, end: 20130119
  83. HUSTAZOL                           /00398403/ [Concomitant]
     Route: 048
     Dates: start: 20141202, end: 20141209
  84. VENA                               /00000402/ [Concomitant]
     Indication: NASOPHARYNGITIS
     Route: 048
     Dates: start: 20130110, end: 20130119
  85. AMLODIPINE                         /00972402/ [Concomitant]
     Active Substance: AMLODIPINE BESYLATE
     Indication: HYPERTENSION
     Route: 048
     Dates: start: 20130621, end: 20130919
  86. AMLODIPINE                         /00972402/ [Concomitant]
     Active Substance: AMLODIPINE BESYLATE
     Route: 048
     Dates: start: 20130920, end: 20150416
  87. PL GRAN. [Concomitant]
     Active Substance: UNSPECIFIED INGREDIENT
     Route: 048
     Dates: start: 20160114, end: 20160123
  88. AIMIX [Concomitant]
     Active Substance: AMLODIPINE BESYLATE\IRBESARTAN
     Indication: HYPERTENSION
     Dosage: UNK UNK, UNKNOWN FREQ.
     Route: 048
     Dates: start: 20130523, end: 20130620

REACTIONS (26)
  - Nephropathy [Recovered/Resolved]
  - Menopausal symptoms [Recovering/Resolving]
  - Hypertension [Recovering/Resolving]
  - Lupus enteritis [Recovered/Resolved]
  - Oral candidiasis [Recovered/Resolved]
  - Angina pectoris [Recovering/Resolving]
  - Abdominal pain upper [Recovered/Resolved]
  - Oedema peripheral [Recovered/Resolved]
  - Hypotension [Recovering/Resolving]
  - Neuropathy peripheral [Recovered/Resolved]
  - Hypertension [Recovering/Resolving]
  - Haemorrhage subcutaneous [Recovered/Resolved]
  - Myalgia [Recovered/Resolved]
  - Headache [Recovered/Resolved]
  - Bronchitis [Recovering/Resolving]
  - Insomnia [Recovering/Resolving]
  - Hyperuricaemia [Recovered/Resolved]
  - Cardiolipin antibody positive [Not Recovered/Not Resolved]
  - Nasopharyngitis [Recovering/Resolving]
  - Herpes zoster [Recovering/Resolving]
  - Dermatophytosis of nail [Recovered/Resolved]
  - Hyperlipidaemia [Recovering/Resolving]
  - Proteinuria [Recovered/Resolved]
  - Hypotension [Recovering/Resolving]
  - Musculoskeletal pain [Recovering/Resolving]
  - Gastroenteritis [Recovered/Resolved]

NARRATIVE: CASE EVENT DATE: 20091220
